FAERS Safety Report 12521167 (Version 3)
Quarter: 2016Q3

REPORT INFORMATION
  Report Type: Spontaneous
  Country: DE (occurrence: DE)
  Receive Date: 20160701
  Receipt Date: 20160801
  Transmission Date: 20161109
  Serious: Yes (Disabling, Other)
  Sender: FDA-Public Use
  Company Number: DE-ASTELLAS-2016US023407

PATIENT
  Age: 78 Year
  Sex: Female

DRUGS (1)
  1. RAPISCAN [Suspect]
     Active Substance: REGADENOSON
     Indication: EXERCISE ELECTROCARDIOGRAM
     Route: 042
     Dates: start: 20160610, end: 20160610

REACTIONS (5)
  - Diarrhoea [Recovered/Resolved]
  - Off label use [Unknown]
  - Haemorrhage subcutaneous [Recovered/Resolved with Sequelae]
  - Flatulence [Recovered/Resolved]
  - Malaise [Recovered/Resolved]

NARRATIVE: CASE EVENT DATE: 20160610
